FAERS Safety Report 8503558-6 (Version None)
Quarter: 2012Q3

REPORT INFORMATION
  Report Type: 
  Country: None (occurrence: None)
  Receive Date: 20120702
  Receipt Date: 20120619
  Transmission Date: 20120928
  Serious: Yes (Other)
  Sender: FDA-Public Use
  Company Number: US-JNJFOC-20120613316

PATIENT

DRUGS (1)
  1. DECITABINE [Suspect]
     Indication: ACUTE MYELOID LEUKAEMIA
     Dosage: 20 MG/M2, IN 4 WEEK, INTRAVENOUS
     Route: 042

REACTIONS (3)
  - NEUTROPENIA [None]
  - TOXICITY TO VARIOUS AGENTS [None]
  - BACTERIAL INFECTION [None]
